FAERS Safety Report 24446962 (Version 1)
Quarter: 2024Q4

REPORT INFORMATION
  Report Type: Spontaneous
  Country: US (occurrence: US)
  Receive Date: 20241016
  Receipt Date: 20241016
  Transmission Date: 20250115
  Serious: No
  Sender: NOVO NORDISK
  Company Number: US-NOVOPROD-1199180

PATIENT
  Sex: Male

DRUGS (1)
  1. SOGROYA [Suspect]
     Active Substance: SOMAPACITAN\SOMAPACITAN-BECO
     Indication: Product used for unknown indication
     Dosage: ONCE WEEKLY {7MG
     Route: 058
     Dates: start: 20240320

REACTIONS (3)
  - Tachycardia [Recovered/Resolved]
  - Vomiting [Recovered/Resolved]
  - Dizziness [Recovered/Resolved]
